FAERS Safety Report 11217671 (Version 3)
Quarter: 2020Q3

REPORT INFORMATION
  Report Type: Spontaneous
  Country: US (occurrence: US)
  Receive Date: 20150625
  Receipt Date: 20200928
  Transmission Date: 20201102
  Serious: Yes (Other)
  Sender: FDA-Public Use
  Company Number: US-AUROBINDO-AUR-APL-2015-05277

PATIENT
  Age: 40 Year
  Sex: Female

DRUGS (1)
  1. MINOCYCLINE [Suspect]
     Active Substance: MINOCYCLINE HYDROCHLORIDE
     Indication: ACNE
     Dosage: UNK
     Route: 065

REACTIONS (2)
  - Skin hyperpigmentation [Recovering/Resolving]
  - Deafness neurosensory [Unknown]
